FAERS Safety Report 25268325 (Version 1)
Quarter: 2025Q2

REPORT INFORMATION
  Report Type: Spontaneous
  Country: US (occurrence: None)
  Receive Date: 20250502
  Receipt Date: 20250502
  Transmission Date: 20250716
  Serious: No
  Sender: FDA-CTU
  Company Number: None

PATIENT
  Sex: Female

DRUGS (2)
  1. INLYTA [Suspect]
     Active Substance: AXITINIB
     Dosage: FREQUENCY : TWICE A DAY;?
     Route: 048
     Dates: start: 20250211, end: 20250325
  2. INLYTA [Concomitant]
     Active Substance: AXITINIB
     Dates: start: 20250211, end: 20250325

REACTIONS (1)
  - Proteinuria [None]
